FAERS Safety Report 7905723-5 (Version None)
Quarter: 2011Q4

REPORT INFORMATION
  Report Type: 
  Country: None (occurrence: None)
  Receive Date: 20111108
  Receipt Date: 20111103
  Transmission Date: 20120403
  Serious: Yes (Other)
  Sender: FDA-Public Use
  Company Number: AUR-APL-2011-05515

PATIENT
  Age: 65 Year
  Sex: Female
  Weight: 68.07 kg

DRUGS (7)
  1. SIMVASTATIN [Suspect]
     Indication: PRODUCT USED FOR UNKNOWN INDICATION
     Dates: start: 20110628
  2. PERSANTIN [Concomitant]
  3. BENDROFLUMETHIAZIDE [Concomitant]
  4. DOXAZOSIN MESYLATE [Concomitant]
  5. DICLOFENAC SODIUM [Concomitant]
  6. ASPIRIN [Concomitant]
  7. LOSARTAN [Concomitant]

REACTIONS (2)
  - MYALGIA [None]
  - FEELING ABNORMAL [None]
